FAERS Safety Report 7713870-6 (Version None)
Quarter: 2011Q3

REPORT INFORMATION
  Report Type: 
  Country: None (occurrence: None)
  Receive Date: 20110826
  Receipt Date: 20110818
  Transmission Date: 20111222
  Serious: Yes (Other)
  Sender: FDA-Public Use
  Company Number: JP-B.I. PHARMACEUTICALS,INC./RIDGEFIELD-2011-BP-20842NB

PATIENT
  Sex: Male
  Weight: 66.85 kg

DRUGS (2)
  1. PRADAXA [Suspect]
     Indication: ATRIAL FIBRILLATION
     Dosage: 220 MG
     Route: 048
     Dates: start: 20110630, end: 20110725
  2. TS-1 [Concomitant]
     Indication: PANCREATIC CARCINOMA
     Route: 065
     Dates: start: 20110720, end: 20110802

REACTIONS (1)
  - PLATELET COUNT DECREASED [None]
